FAERS Safety Report 4729695-X (Version None)
Quarter: 2005Q3

REPORT INFORMATION
  Report Type: 
  Country: None (occurrence: None)
  Receive Date: 20050801
  Receipt Date: 20050601
  Transmission Date: 20060218
  Serious: Yes (Disabling)
  Sender: FDA-Public Use
  Company Number: US-MERCK-0506USA00479

PATIENT
  Age: 58 Year
  Sex: Male
  Weight: 77 kg

DRUGS (1)
  1. PRINIVIL [Suspect]
     Route: 048
     Dates: start: 20030301, end: 20050501

REACTIONS (2)
  - DEAFNESS NEUROSENSORY [None]
  - TINNITUS [None]
